FAERS Safety Report 19332420 (Version 1)
Quarter: 2021Q2

REPORT INFORMATION
  Report Type: Spontaneous
  Country: CA (occurrence: CA)
  Receive Date: 20210529
  Receipt Date: 20210529
  Transmission Date: 20210717
  Serious: Yes (Other)
  Sender: FDA-Public Use
  Company Number: CA-JNJFOC-20210538937

PATIENT
  Sex: Female

DRUGS (1)
  1. IBUPROFEN. [Suspect]
     Active Substance: IBUPROFEN
     Indication: PATENT DUCTUS ARTERIOSUS
     Dosage: NEONATES WITH A PNA OF LESS THAN OR EQUAL TO 3 DAYS RECEIVED THREE DAILY DOSES OF 10, 5 AND 5 MG/KG,
     Route: 048

REACTIONS (6)
  - Product use in unapproved indication [Unknown]
  - Off label use [Unknown]
  - Feeding intolerance [Unknown]
  - Renal impairment [Unknown]
  - Necrotising colitis [Unknown]
  - Therapeutic response unexpected [Unknown]
